FAERS Safety Report 15436510 (Version 1)
Quarter: 2018Q3

REPORT INFORMATION
  Report Type: Spontaneous
  Country: US (occurrence: US)
  Receive Date: 20180927
  Receipt Date: 20180927
  Transmission Date: 20181010
  Serious: Yes (Other)
  Sender: FDA-Public Use
  Company Number: US-MYLANLABS-2018M1069110

PATIENT
  Age: 90 Year
  Sex: Female

DRUGS (1)
  1. ERLOTINIB [Suspect]
     Active Substance: ERLOTINIB
     Indication: SQUAMOUS CELL CARCINOMA OF LUNG
     Dosage: INITIAL DOSE THAT SHE HAD BEEN TAKING FOR THE PREVIOUS 3 MONTHS WITHOUT DERMATOLOGIC SEQUELAE WAS...
     Route: 065

REACTIONS (2)
  - Paradoxical drug reaction [Recovering/Resolving]
  - Psoriasis [Recovering/Resolving]
